FAERS Safety Report 12168621 (Version 1)
Quarter: 2016Q1

REPORT INFORMATION
  Report Type: Spontaneous
  Country: US (occurrence: US)
  Receive Date: 20160310
  Receipt Date: 20160310
  Transmission Date: 20160526
  Serious: Yes (Other)
  Sender: FDA-Public Use
  Company Number: US-BAYER-2016-040169

PATIENT
  Age: 33 Year
  Sex: Female

DRUGS (1)
  1. MIRENA [Suspect]
     Active Substance: LEVONORGESTREL
     Dosage: 20 MCG/24HR, CONT
     Route: 015
     Dates: start: 200811, end: 20120622

REACTIONS (8)
  - Pregnancy with contraceptive device [None]
  - Device dislocation [None]
  - Murphy^s sign positive [None]
  - Device difficult to use [None]
  - Abdominal pain upper [None]
  - Pelvic adhesions [None]
  - Cholelithiasis [None]
  - Drug ineffective [None]

NARRATIVE: CASE EVENT DATE: 200909
